FAERS Safety Report 7281310-X (Version None)
Quarter: 2011Q1

REPORT INFORMATION
  Report Type: 
  Country: None (occurrence: None)
  Receive Date: 20110208
  Receipt Date: 20110128
  Transmission Date: 20110831
  Serious: Yes (Hospitalization)
  Sender: FDA-Public Use
  Company Number: US-ASTRAZENECA-2011SE00942

PATIENT
  Age: 67 Year
  Sex: Female

DRUGS (3)
  1. EFFEXOR [Concomitant]
     Route: 048
  2. UNSPECIFIED MEDICATION [Concomitant]
  3. SEROQUEL XR [Suspect]
     Indication: MAJOR DEPRESSION
     Dosage: 50 - 150 DAILY
     Route: 048
     Dates: start: 20100101

REACTIONS (6)
  - INSOMNIA [None]
  - ANXIETY [None]
  - DELUSION [None]
  - HALLUCINATION [None]
  - PSYCHOTIC DISORDER [None]
  - PRESSURE OF SPEECH [None]
